FAERS Safety Report 8384560-4 (Version None)
Quarter: 2012Q2

REPORT INFORMATION
  Report Type: 
  Country: None (occurrence: None)
  Receive Date: 20120524
  Receipt Date: 20120523
  Transmission Date: 20120825
  Serious: Yes (Other)
  Sender: FDA-Public Use
  Company Number: US-PFIZER INC-2012110107

PATIENT
  Sex: Male

DRUGS (6)
  1. LIPITOR [Suspect]
     Dosage: UNK
     Route: 048
  2. TRAMADOL HYDROCHLORIDE [Concomitant]
     Dosage: UNK
  3. OMEPRAZOLE [Concomitant]
     Dosage: UNK
  4. TAMSULOSIN HYDROCHLORIDE [Concomitant]
     Dosage: UNK
  5. VICODIN [Concomitant]
     Dosage: UNK
  6. TIMOLOL [Concomitant]
     Indication: GLAUCOMA
     Dosage: UNK

REACTIONS (1)
  - NO ADVERSE EVENT [None]
